FAERS Safety Report 23593921 (Version 2)
Quarter: 2024Q2

REPORT INFORMATION
  Report Type: Spontaneous
  Country: US (occurrence: US)
  Receive Date: 20240305
  Receipt Date: 20240506
  Transmission Date: 20240716
  Serious: Yes (Other)
  Sender: FDA-Public Use
  Company Number: US-NOVOPROD-1182562

PATIENT
  Sex: Male

DRUGS (1)
  1. NOVOLOG [Suspect]
     Active Substance: INSULIN ASPART
     Indication: Product used for unknown indication
     Dosage: DIALED 15 IU BUT MAY HAVE RECEIVED 5-6 IU
     Route: 058

REACTIONS (3)
  - Blood glucose fluctuation [Not Recovered/Not Resolved]
  - Device issue [Unknown]
  - Incorrect dose administered by device [Unknown]
